FAERS Safety Report 19718484 (Version 2)
Quarter: 2021Q3

REPORT INFORMATION
  Report Type: Spontaneous
  Country: IN (occurrence: IN)
  Receive Date: 20210819
  Receipt Date: 20210915
  Transmission Date: 20211014
  Serious: Yes (Death, Other)
  Sender: FDA-Public Use
  Company Number: IN-PFIZER INC-2021133392

PATIENT
  Age: 46 Year
  Sex: Female

DRUGS (4)
  1. ENDACE [Concomitant]
     Active Substance: MEGESTROL ACETATE
     Dosage: 40 MG, BD
  2. ZOLEDRONIC ACID [Concomitant]
     Active Substance: ZOLEDRONIC ACID
     Dosage: 4 MG
  3. PALBACE [Suspect]
     Active Substance: PALBOCICLIB
     Indication: BREAST CANCER METASTATIC
     Dosage: 125 MG, 1X/DAY
     Route: 048
     Dates: start: 20200317, end: 202107
  4. LETROZOLE. [Concomitant]
     Active Substance: LETROZOLE
     Dosage: 2.5 MG, OD

REACTIONS (9)
  - Demyelination [Unknown]
  - Ischaemia [Unknown]
  - Vasculitis [Unknown]
  - Eye movement disorder [Unknown]
  - Neoplasm progression [Unknown]
  - Asthenia [Unknown]
  - COVID-19 pneumonia [Unknown]
  - SARS-CoV-2 test positive [Unknown]
  - Death [Fatal]

NARRATIVE: CASE EVENT DATE: 202107
